FAERS Safety Report 9795666 (Version 1)
Quarter: 2014Q1

REPORT INFORMATION
  Report Type: Spontaneous
  Country: US (occurrence: US)
  Receive Date: 20140103
  Receipt Date: 20140103
  Transmission Date: 20141002
  Serious: No
  Sender: FDA-Public Use
  Company Number: US-PFIZER INC-2014000127

PATIENT
  Age: 75 Year
  Sex: Female
  Weight: 68.03 kg

DRUGS (4)
  1. LEVOXYL [Suspect]
     Indication: THYROID DISORDER
     Dosage: 0.112 UG, 1X/DAY
     Dates: end: 2013
  2. LEVOXYL [Suspect]
     Indication: AUTOIMMUNE THYROIDITIS
  3. LEVOTHYROXINE [Suspect]
     Indication: HORMONE REPLACEMENT THERAPY
     Dosage: 0.112 UG, 1X/DAY
     Dates: start: 2013, end: 2013
  4. SYNTHROID [Suspect]
     Indication: HORMONE REPLACEMENT THERAPY
     Dosage: 0.112 UG, 1X/DAY
     Dates: start: 201312

REACTIONS (1)
  - Alopecia [Not Recovered/Not Resolved]
